FAERS Safety Report 25007050 (Version 1)
Quarter: 2025Q1

REPORT INFORMATION
  Report Type: Other
  Country: US (occurrence: US)
  Receive Date: 20250225
  Receipt Date: 20250225
  Transmission Date: 20250409
  Serious: Yes (Other)
  Sender: DR REDDYS
  Company Number: US-drreddys-USA/USA/19/0111394

PATIENT

DRUGS (3)
  1. AZACITIDINE [Suspect]
     Active Substance: AZACITIDINE
     Indication: Myeloproliferative neoplasm
     Route: 042
  2. AMINOCAPROIC ACID [Suspect]
     Active Substance: AMINOCAPROIC ACID
     Indication: Myeloproliferative neoplasm
  3. VITAMIN K [Concomitant]
     Active Substance: PHYTONADIONE
     Indication: Product used for unknown indication

REACTIONS (1)
  - Deep vein thrombosis [Unknown]
